FAERS Safety Report 5080796-9 (Version None)
Quarter: 2006Q3

REPORT INFORMATION
  Report Type: 
  Country: None (occurrence: None)
  Receive Date: 20060810
  Receipt Date: 20060728
  Transmission Date: 20061208
  Serious: Yes (Other)
  Sender: FDA-Public Use
  Company Number: 12999

PATIENT
  Age: 67 Year
  Sex: Female
  Weight: 87.6 kg

DRUGS (3)
  1. CARBOPLATIN [Suspect]
     Indication: OVARIAN CANCER
     Dosage: 745 MG Q1HR IV
     Route: 042
     Dates: start: 20050622
  2. DEXAMETHASONE [Concomitant]
  3. DOLASETRON MESYLATE [Concomitant]

REACTIONS (3)
  - ERYTHEMA [None]
  - OEDEMA PERIPHERAL [None]
  - PRURITUS [None]
